FAERS Safety Report 15261375 (Version 1)
Quarter: 2018Q3

REPORT INFORMATION
  Report Type: Report from Study
  Country: US (occurrence: US)
  Receive Date: 20180809
  Receipt Date: 20180809
  Transmission Date: 20181010
  Serious: Yes (Hospitalization)
  Sender: FDA-Public Use
  Company Number: US-JNJFOC-20180810341

PATIENT
  Age: 83 Year
  Sex: Female

DRUGS (18)
  1. CINNAMON                           /01647501/ [Concomitant]
     Active Substance: CINNAMON
  2. GLUTATHIONE [Concomitant]
     Active Substance: GLUTATHIONE
  3. MULTIVITAMINS [Concomitant]
     Active Substance: VITAMINS
  4. MICARDIS [Concomitant]
     Active Substance: TELMISARTAN
  5. ATENOLOL. [Concomitant]
     Active Substance: ATENOLOL
  6. METFORMIN [Concomitant]
     Active Substance: METFORMIN HYDROCHLORIDE
  7. LAMICTAL [Concomitant]
     Active Substance: LAMOTRIGINE
  8. MAGNESIUM [Concomitant]
     Active Substance: MAGNESIUM
  9. GLIMEPIRIDE. [Concomitant]
     Active Substance: GLIMEPIRIDE
  10. FISH OIL [Concomitant]
     Active Substance: FISH OIL
  11. SPIRONOLACTONE. [Concomitant]
     Active Substance: SPIRONOLACTONE
  12. ASPIRIN                            /00002701/ [Concomitant]
     Active Substance: ASPIRIN
  13. LORAZEPAM. [Concomitant]
     Active Substance: LORAZEPAM
  14. IMBRUVICA [Suspect]
     Active Substance: IBRUTINIB
     Indication: WALDENSTROM^S MACROGLOBULINAEMIA
     Route: 048
     Dates: start: 20180701
  15. VITAMIN D [Concomitant]
     Active Substance: CHOLECALCIFEROL
  16. VITAMIN C [Concomitant]
     Active Substance: ASCORBIC ACID
  17. VITAMIN B COMPLEX [Concomitant]
     Active Substance: CYANOCOBALAMIN\DEXPANTHENOL\NIACINAMIDE\PYRIDOXINE HYDROCHLORIDE\RIBOFLAVIN 5^-PHOSPHATE SODIUM\THIAMINE HYDROCHLORIDE\VITAMIN B COMPLEX
  18. PROZAC [Concomitant]
     Active Substance: FLUOXETINE HYDROCHLORIDE

REACTIONS (1)
  - Cerebrovascular accident [Unknown]

NARRATIVE: CASE EVENT DATE: 20180712
